FAERS Safety Report 17326184 (Version 2)
Quarter: 2020Q1

REPORT INFORMATION
  Report Type: Spontaneous
  Country: DE (occurrence: DE)
  Receive Date: 20200127
  Receipt Date: 20200217
  Transmission Date: 20200409
  Serious: No
  Sender: FDA-Public Use
  Company Number: DE-PFIZER INC-2020034034

PATIENT
  Age: 87 Year
  Sex: Male

DRUGS (3)
  1. CLONID OPHTAL [Suspect]
     Active Substance: CLONIDINE HYDROCHLORIDE
     Dosage: UNK, DAILY
  2. VALSARTAN. [Concomitant]
     Active Substance: VALSARTAN
     Dosage: 40 MG, 1X/DAY
  3. PREGABALIN. [Suspect]
     Active Substance: PREGABALIN
     Indication: POLYNEUROPATHY
     Dosage: 25 MG, 1X/DAY (SINCE FALL 2018)

REACTIONS (4)
  - Quality of life decreased [Not Recovered/Not Resolved]
  - Visual impairment [Not Recovered/Not Resolved]
  - Drug intolerance [Not Recovered/Not Resolved]
  - Product storage error [Unknown]
